FAERS Safety Report 6717771-1 (Version None)
Quarter: 2010Q2

REPORT INFORMATION
  Report Type: 
  Country: None (occurrence: None)
  Receive Date: 20100510
  Receipt Date: 20100430
  Transmission Date: 20101027
  Serious: Yes (Death)
  Sender: FDA-Public Use
  Company Number: GXKR2010DK04914

PATIENT
  Age: 71 Year
  Sex: Female

DRUGS (8)
  1. METHYLPREDNISOLONE 4MG TAB [Suspect]
     Indication: ENDOCRINE OPHTHALMOPATHY
     Dosage: 5 G, UNK
     Route: 042
     Dates: start: 20030601
  2. METHYLPREDNISOLONE 4MG TAB [Suspect]
     Dosage: 3 G, UNK
     Route: 042
     Dates: start: 20031201
  3. CYCLOSPORINE [Concomitant]
     Route: 065
  4. DIGOXIN [Concomitant]
     Indication: ATRIAL FIBRILLATION
     Route: 065
  5. CLOPIDOGREL [Concomitant]
     Indication: ATRIAL FIBRILLATION
     Route: 065
  6. PROPYLTHIOURACIL [Concomitant]
     Indication: HYPERTHYROIDISM
     Route: 065
  7. PROPYLTHIOURACIL [Concomitant]
     Indication: ENDOCRINE OPHTHALMOPATHY
  8. RADIOTHERAPY [Concomitant]
     Route: 065

REACTIONS (6)
  - CARDIAC ARREST [None]
  - CORONARY ARTERY THROMBOSIS [None]
  - DYSPNOEA [None]
  - PULMONARY EMBOLISM [None]
  - RESPIRATORY ARREST [None]
  - RESUSCITATION [None]
